FAERS Safety Report 7571898-3 (Version None)
Quarter: 2011Q2

REPORT INFORMATION
  Report Type: 
  Country: None (occurrence: None)
  Receive Date: 20110624
  Receipt Date: 20100817
  Transmission Date: 20111010
  Serious: No
  Sender: FDA-Public Use
  Company Number: A0877544A

PATIENT
  Sex: Female

DRUGS (2)
  1. VERAMYST [Suspect]
  2. FLUTICASONE PROPIONATE [Suspect]

REACTIONS (1)
  - HEADACHE [None]
